FAERS Safety Report 9260036 (Version 2)
Quarter: 2013Q4

REPORT INFORMATION
  Report Type: Spontaneous
  Country: GB (occurrence: GB)
  Receive Date: 20130429
  Receipt Date: 20131009
  Transmission Date: 20140711
  Serious: Yes (Death, Life-Threatening, Hospitalization)
  Sender: FDA-Public Use
  Company Number: GB-JNJFOC-20130413728

PATIENT
  Age: 82 Year
  Sex: Female
  Weight: 60 kg

DRUGS (8)
  1. XARELTO [Suspect]
     Indication: CEREBROVASCULAR ACCIDENT PROPHYLAXIS
     Route: 048
     Dates: start: 20130411, end: 20130415
  2. XARELTO [Suspect]
     Indication: ATRIAL FIBRILLATION
     Route: 048
     Dates: start: 20130411, end: 20130415
  3. ALENDRONIC ACID [Concomitant]
     Route: 065
  4. SINEMET [Concomitant]
     Route: 065
  5. BISOPROLOL [Concomitant]
     Route: 065
  6. ROPINIROLE [Concomitant]
     Route: 065
  7. ADCAL D3 [Concomitant]
     Route: 065
  8. ACETYLSALICYLIC ACID [Concomitant]
     Route: 065

REACTIONS (4)
  - Gastrointestinal haemorrhage [Fatal]
  - Melaena [Not Recovered/Not Resolved]
  - Haemoglobin decreased [Unknown]
  - Haemodynamic instability [Unknown]
